FAERS Safety Report 23148059 (Version 1)
Quarter: 2023Q4

REPORT INFORMATION
  Report Type: Spontaneous
  Country: US (occurrence: US)
  Receive Date: 20231106
  Receipt Date: 20231106
  Transmission Date: 20240110
  Serious: Yes (Other)
  Sender: FDA-Public Use
  Company Number: US-EPIZYME, INC-2023USEPIZYME0844

PATIENT
  Age: 44 Year
  Sex: Male
  Weight: 81.64 kg

DRUGS (10)
  1. TAZVERIK [Suspect]
     Active Substance: TAZEMETOSTAT HYDROBROMIDE
     Indication: Neoplasm malignant
     Dosage: MORNING AND EVENING
     Route: 048
  2. ACETAMINOPHEN\HYDROCODONE [Concomitant]
     Active Substance: ACETAMINOPHEN\HYDROCODONE
  3. INSULIN LISPRO [Concomitant]
     Active Substance: INSULIN LISPRO
  4. METFORMIN [Concomitant]
     Active Substance: METFORMIN HYDROCHLORIDE
  5. MORPHINE SULFATE [Concomitant]
     Active Substance: MORPHINE SULFATE
  6. FISH OIL [Concomitant]
     Active Substance: FISH OIL
  7. VITAMIN A [Concomitant]
     Active Substance: VITAMIN A
  8. VITAMIN C [Concomitant]
     Active Substance: ASCORBIC ACID
  9. VITAMIN B COMPLEX [Concomitant]
     Active Substance: CYANOCOBALAMIN\DEXPANTHENOL\NIACINAMIDE\PYRIDOXINE HYDROCHLORIDE\RIBOFLAVIN 5^-PHOSPHATE SODIUM\THIA
  10. NORCO [Concomitant]
     Active Substance: ACETAMINOPHEN\HYDROCODONE BITARTRATE

REACTIONS (3)
  - Cancer surgery [Recovered/Resolved]
  - Malaise [Unknown]
  - Neoplasm [Unknown]
